FAERS Safety Report 12694251 (Version 1)
Quarter: 2016Q3

REPORT INFORMATION
  Report Type: Spontaneous
  Country: US (occurrence: US)
  Receive Date: 20160829
  Receipt Date: 20160829
  Transmission Date: 20161109
  Serious: No
  Sender: FDA-Public Use
  Company Number: US-PFIZER INC-2016404040

PATIENT
  Age: 43 Year
  Sex: Male
  Weight: 77 kg

DRUGS (5)
  1. OXYCODONE [Concomitant]
     Active Substance: OXYCODONE
     Indication: SCIATICA
     Dosage: 30 MG, 2X/DAY
     Route: 048
     Dates: start: 2012
  2. OXYCODONE [Concomitant]
     Active Substance: OXYCODONE
     Indication: NEURALGIA
  3. LYRICA [Suspect]
     Active Substance: PREGABALIN
     Indication: NEURALGIA
     Dosage: 100 MG, 3X/DAY
     Route: 048
  4. OMEPRAZOLE. [Concomitant]
     Active Substance: OMEPRAZOLE
     Indication: GASTROOESOPHAGEAL REFLUX DISEASE
     Dosage: 80 MG, 1X/DAY
     Route: 048
     Dates: start: 2014
  5. OXYCODONE [Concomitant]
     Active Substance: OXYCODONE
     Indication: BACK PAIN

REACTIONS (7)
  - Hypoaesthesia [Not Recovered/Not Resolved]
  - Paraesthesia [Not Recovered/Not Resolved]
  - Migraine [Not Recovered/Not Resolved]
  - Local swelling [Unknown]
  - Peripheral swelling [Not Recovered/Not Resolved]
  - Somnolence [Unknown]
  - Thyroid mass [Not Recovered/Not Resolved]

NARRATIVE: CASE EVENT DATE: 201607
